FAERS Safety Report 7568587-8 (Version None)
Quarter: 2011Q2

REPORT INFORMATION
  Report Type: 
  Country: None (occurrence: None)
  Receive Date: 20110623
  Receipt Date: 20110616
  Transmission Date: 20111010
  Serious: Yes (Other)
  Sender: FDA-Public Use
  Company Number: GB-TEVA-275699ISR

PATIENT
  Age: 58 Year
  Sex: Male
  Weight: 72 kg

DRUGS (1)
  1. SIMVASTATIN [Suspect]
     Dates: start: 20110101, end: 20110329

REACTIONS (1)
  - ABNORMAL LOSS OF WEIGHT [None]
